FAERS Safety Report 18308621 (Version 1)
Quarter: 2020Q3

REPORT INFORMATION
  Report Type: Spontaneous
  Country: GR (occurrence: GR)
  Receive Date: 20200924
  Receipt Date: 20200924
  Transmission Date: 20201103
  Serious: Yes (Other)
  Sender: FDA-Public Use
  Company Number: GR-GLAXOSMITHKLINE-GR2020EME186794

PATIENT
  Age: 78 Year
  Sex: Female

DRUGS (1)
  1. CEFUROXIM [Suspect]
     Active Substance: CEFUROXIME
     Indication: PRODUCT USED FOR UNKNOWN INDICATION
     Dosage: 1MG/0.1 ML

REACTIONS (5)
  - Serous retinal detachment [Unknown]
  - Retinal thickening [Unknown]
  - Retinal toxicity [Unknown]
  - Macular oedema [Unknown]
  - Retinal pallor [Unknown]
